FAERS Safety Report 16489671 (Version 1)
Quarter: 2019Q2

REPORT INFORMATION
  Report Type: Spontaneous
  Country: US (occurrence: US)
  Receive Date: 20190628
  Receipt Date: 20190628
  Transmission Date: 20190711
  Serious: No
  Sender: FDA-Public Use
  Company Number: US-ACCORD-071316

PATIENT
  Sex: Female
  Weight: 77.11 kg

DRUGS (1)
  1. CLONAZEPAM ACCORD [Suspect]
     Active Substance: CLONAZEPAM
     Indication: SLEEP DISORDER
     Dosage: STRENGTH: 1 MG
     Route: 048
     Dates: start: 201807

REACTIONS (3)
  - Off label use [Unknown]
  - Product substitution issue [Unknown]
  - Drug ineffective [Unknown]
